FAERS Safety Report 24708341 (Version 1)
Quarter: 2024Q4

REPORT INFORMATION
  Report Type: Spontaneous
  Country: CN (occurrence: CN)
  Receive Date: 20241207
  Receipt Date: 20241207
  Transmission Date: 20250115
  Serious: Yes (Hospitalization)
  Sender: AUROBINDO
  Company Number: CN-AUROBINDO-AUR-APL-2024-059625

PATIENT
  Age: 15 Year
  Sex: Male

DRUGS (1)
  1. SERTRALINE HYDROCHLORIDE [Suspect]
     Active Substance: SERTRALINE HYDROCHLORIDE
     Indication: Depression
     Dosage: 50 MILLIGRAM (10 TABLETS)
     Route: 048
     Dates: start: 20241107, end: 20241108

REACTIONS (5)
  - Dizziness [Recovering/Resolving]
  - Headache [Recovering/Resolving]
  - Palpitations [Recovering/Resolving]
  - Toxicity to various agents [Unknown]
  - Intentional overdose [Unknown]

NARRATIVE: CASE EVENT DATE: 20241108
